FAERS Safety Report 9074197 (Version 1)
Quarter: 2013Q1

REPORT INFORMATION
  Report Type: Report from Study
  Country: US (occurrence: US)
  Receive Date: 20130129
  Receipt Date: 20130129
  Transmission Date: 20140127
  Serious: No
  Sender: FDA-Public Use
  Company Number: US-ABBOTT-12P-163-0916345-00

PATIENT
  Age: 54 Year
  Sex: Female

DRUGS (8)
  1. HUMIRA 40 MG/0.8 ML PEN [Suspect]
     Indication: PSORIASIS
     Dates: start: 201201
  2. VITAMIN D [Concomitant]
     Indication: VITAMIN SUPPLEMENTATION
     Route: 048
     Dates: start: 2010
  3. VITAMIN B12 [Concomitant]
     Indication: ASTHENIA
     Route: 050
     Dates: start: 2010
  4. VITAMIN B12 [Concomitant]
     Indication: VITAMIN SUPPLEMENTATION
     Dosage: 2500 MCG QD GOES BETWEEN INJECTIONS
     Route: 060
     Dates: start: 2010
  5. METHOTREXATE [Concomitant]
     Indication: PRODUCT USED FOR UNKNOWN INDICATION
     Dosage: 8 TABS WEEKLY
     Route: 048
     Dates: start: 201106, end: 201203
  6. METHOTREXATE [Concomitant]
     Dosage: 6 TABS WEEKLY
     Dates: start: 201203
  7. FOLIC ACID [Concomitant]
     Indication: PRODUCT USED FOR UNKNOWN INDICATION
     Dosage: 1MG DAILY, EXCEPT DAY OF METHOTREXATE
     Route: 048
     Dates: start: 201106
  8. ESTRADIOL [Concomitant]
     Indication: HORMONE REPLACEMENT THERAPY
     Dosage: 1 MG DAILY
     Route: 048

REACTIONS (4)
  - Skin discolouration [Unknown]
  - Rash pustular [Not Recovered/Not Resolved]
  - Psoriasis [Not Recovered/Not Resolved]
  - Rash pustular [Unknown]
